FAERS Safety Report 24812979 (Version 2)
Quarter: 2025Q1

REPORT INFORMATION
  Report Type: Report from Study
  Country: IN (occurrence: IN)
  Receive Date: 20250107
  Receipt Date: 20250207
  Transmission Date: 20250409
  Serious: Yes (Other)
  Sender: ROCHE
  Company Number: IN-ROCHE-10000171265

PATIENT
  Age: 62 Year
  Sex: Male
  Weight: 88.2 kg

DRUGS (2)
  1. POLIVY [Suspect]
     Active Substance: POLATUZUMAB VEDOTIN-PIIQ
     Indication: Diffuse large B-cell lymphoma
     Route: 040
  2. POLIVY [Suspect]
     Active Substance: POLATUZUMAB VEDOTIN-PIIQ
     Route: 040
     Dates: start: 20241005

REACTIONS (3)
  - Off label use [Unknown]
  - Weight increased [Unknown]
  - Neoplasm malignant [Unknown]
